FAERS Safety Report 17924494 (Version 2)
Quarter: 2021Q4

REPORT INFORMATION
  Report Type: Other
  Country: US (occurrence: US)
  Receive Date: 20200622
  Receipt Date: 20211221
  Transmission Date: 20220303
  Serious: No
  Sender: FDA-Public Use
  Company Number: US-ACORDA-ACO_164688_2020

PATIENT
  Age: 75 Year
  Sex: Male

DRUGS (3)
  1. INBRIJA [Suspect]
     Active Substance: LEVODOPA
     Indication: Parkinson^s disease
     Dosage: 84 MILLIGRAMS, PRN (2 CAPSULES OF 42MG AS NEEDED) NOT TO EXCEED 5 DOSES PER DAY
     Dates: start: 202002
  2. INBRIJA [Suspect]
     Active Substance: LEVODOPA
     Indication: On and off phenomenon
  3. CARBIDOPA\LEVODOPA [Concomitant]
     Active Substance: CARBIDOPA\LEVODOPA
     Indication: Product used for unknown indication
     Dosage: 25MG/100MG: 3 TABLETS 3X PER DAY
     Route: 065

REACTIONS (5)
  - Therapeutic product effect variable [Unknown]
  - Wrong technique in product usage process [Unknown]
  - Device occlusion [None]
  - Incorrect dose administered by device [Unknown]
  - Expired product administered [Unknown]

NARRATIVE: CASE EVENT DATE: 20200414
